FAERS Safety Report 8571702-0 (Version None)
Quarter: 2012Q3

REPORT INFORMATION
  Report Type: 
  Country: None (occurrence: None)
  Receive Date: 20120806
  Receipt Date: 20120729
  Transmission Date: 20120928
  Serious: Yes (Hospitalization)
  Sender: FDA-Public Use
  Company Number: DE-JNJFOC-20120714359

PATIENT
  Sex: Female
  Weight: 55 kg

DRUGS (3)
  1. CONCERTA [Suspect]
     Indication: PRODUCT USED FOR UNKNOWN INDICATION
     Route: 048
  2. CONCERTA [Suspect]
     Dosage: 9 TABLETS OF 36 MG
     Route: 048
     Dates: start: 20120728, end: 20120728
  3. CONCERTA [Suspect]
     Route: 048

REACTIONS (5)
  - SUICIDE ATTEMPT [None]
  - RESTLESSNESS [None]
  - ASTHENIA [None]
  - SLEEP DISORDER [None]
  - INTENTIONAL OVERDOSE [None]
